FAERS Safety Report 17170394 (Version 2)
Quarter: 2020Q1

REPORT INFORMATION
  Report Type: Spontaneous
  Country: JP (occurrence: JP)
  Receive Date: 20191218
  Receipt Date: 20200214
  Transmission Date: 20200409
  Serious: Yes (Hospitalization)
  Sender: FDA-Public Use
  Company Number: JP-ASTRAZENECA-2019SF81555

PATIENT
  Age: 76 Year
  Sex: Male
  Weight: 61 kg

DRUGS (2)
  1. IMFINZI [Suspect]
     Active Substance: DURVALUMAB
     Indication: NON-SMALL CELL LUNG CANCER
     Route: 042
     Dates: start: 20190813, end: 20190813
  2. IMFINZI [Suspect]
     Active Substance: DURVALUMAB
     Indication: NON-SMALL CELL LUNG CANCER
     Route: 042
     Dates: start: 20191008, end: 20191126

REACTIONS (2)
  - Radiation pneumonitis [Unknown]
  - Lung disorder [Recovered/Resolved]

NARRATIVE: CASE EVENT DATE: 2019
